FAERS Safety Report 12700293 (Version 1)
Quarter: 2016Q3

REPORT INFORMATION
  Report Type: Spontaneous
  Country: US (occurrence: US)
  Receive Date: 20160830
  Receipt Date: 20160830
  Transmission Date: 20161109
  Serious: No
  Sender: FDA-Public Use
  Company Number: US-SA-2015SA138975

PATIENT
  Age: 13 Year
  Sex: Female
  Weight: 54.52 kg

DRUGS (13)
  1. FABRAZYME [Suspect]
     Active Substance: AGALSIDASE BETA
     Indication: FABRY^S DISEASE
     Route: 041
     Dates: end: 201507
  2. NORMAL SALINE [Concomitant]
     Active Substance: SODIUM CHLORIDE
     Dosage: AS DIRECTED
     Route: 042
     Dates: start: 20150823
  3. SODIUM CHLORIDE. [Concomitant]
     Active Substance: SODIUM CHLORIDE
     Indication: FLUSHING
     Dosage: AS DIRECTED
     Route: 042
     Dates: start: 20150823
  4. NAPROXEN. [Concomitant]
     Active Substance: NAPROXEN
  5. FABRAZYME [Suspect]
     Active Substance: AGALSIDASE BETA
     Indication: FABRY^S DISEASE
     Route: 041
  6. IBUPROFEN. [Concomitant]
     Active Substance: IBUPROFEN
     Dosage: BY MOUTH AS DIRECTED
     Route: 048
     Dates: start: 20150823
  7. TOPAMAX [Concomitant]
     Active Substance: TOPIRAMATE
  8. DIPHENHYDRAMINE. [Concomitant]
     Active Substance: DIPHENHYDRAMINE
     Indication: ANAPHYLACTIC REACTION
     Dosage: BY MOUTH AS DIRECTED
     Route: 048
     Dates: start: 20150823
  9. WATER FOR INJECTION [Concomitant]
     Active Substance: WATER
     Dosage: AS DIRECTED
     Dates: start: 20150823
  10. FABRAZYME [Suspect]
     Active Substance: AGALSIDASE BETA
     Indication: FABRY^S DISEASE
     Route: 041
     Dates: start: 20120307
  11. EPIPEN [Concomitant]
     Active Substance: EPINEPHRINE
     Indication: ANAPHYLACTIC REACTION
     Route: 030
     Dates: start: 20150823
  12. L-M-X [Concomitant]
     Indication: PREMEDICATION
     Route: 061
     Dates: start: 20150823
  13. SOLU-CORTEF [Concomitant]
     Active Substance: HYDROCORTISONE SODIUM SUCCINATE
     Indication: ANAPHYLACTIC REACTION
     Route: 042
     Dates: start: 20150823

REACTIONS (4)
  - Flushing [Recovered/Resolved]
  - Urticaria [Recovered/Resolved]
  - Rash papular [Unknown]
  - Rash pruritic [Unknown]

NARRATIVE: CASE EVENT DATE: 20150905
